FAERS Safety Report 6087549-3 (Version None)
Quarter: 2009Q1

REPORT INFORMATION
  Report Type: 
  Country: None (occurrence: None)
  Receive Date: 20090223
  Receipt Date: 20090213
  Transmission Date: 20090719
  Serious: Yes (Other)
  Sender: FDA-Public Use
  Company Number: PHHY2007MX00862

PATIENT
  Sex: Female

DRUGS (1)
  1. DIOVAN HCT [Suspect]
     Indication: HYPERTENSION
     Dosage: 1 TABLET (160/12.5 MG)/DAY
     Route: 048
     Dates: start: 20070116

REACTIONS (7)
  - COLLAPSE OF LUNG [None]
  - HYPOTENSION [None]
  - LYMPHADENECTOMY [None]
  - SPEECH DISORDER [None]
  - THYROID CANCER [None]
  - THYROIDECTOMY [None]
  - VOCAL CORD PARALYSIS [None]
